FAERS Safety Report 17055638 (Version 1)
Quarter: 2019Q4

REPORT INFORMATION
  Report Type: Other
  Country: ES (occurrence: ES)
  Receive Date: 20191120
  Receipt Date: 20191120
  Transmission Date: 20200122
  Serious: Yes (Hospitalization)
  Sender: FDA-Public Use
  Company Number: ES-CELLTRION INC.-2019ES026504

PATIENT

DRUGS (7)
  1. RITUXIMAB (UNKNOWN) [Suspect]
     Active Substance: RITUXIMAB
     Indication: SYSTEMIC LUPUS ERYTHEMATOSUS
     Dosage: UNK
     Route: 042
     Dates: start: 20190222, end: 20190222
  2. HIDROXICLOROQUINA [HYDROXYCHLOROQUINE] [Concomitant]
  3. MICOFENOLATO DE MOFETILO [Concomitant]
  4. HIERRO SULFATO [Concomitant]
  5. OMEPRAZOL [OMEPRAZOLE] [Concomitant]
     Active Substance: OMEPRAZOLE
  6. CALCIFEDIOL [Concomitant]
     Active Substance: CALCIFEDIOL
  7. PREDNISONA [Concomitant]
     Active Substance: PREDNISONE

REACTIONS (5)
  - Presyncope [Recovered/Resolved]
  - Abdominal pain upper [Recovered/Resolved]
  - Vomiting [Recovered/Resolved]
  - Dizziness [Recovered/Resolved]
  - Product use in unapproved indication [Unknown]

NARRATIVE: CASE EVENT DATE: 20190222
